FAERS Safety Report 6967465-2 (Version None)
Quarter: 2010Q3

REPORT INFORMATION
  Report Type: 
  Country: None (occurrence: None)
  Receive Date: 20100823
  Receipt Date: 20100621
  Transmission Date: 20110219
  Serious: No
  Sender: FDA-Public Use
  Company Number: 014625

PATIENT

DRUGS (1)
  1. CIMZIA [Suspect]
     Dosage: (400 MG 1X/MONTH SUBCUTANEOUS)
     Route: 058

REACTIONS (3)
  - INSOMNIA [None]
  - INTRA-ABDOMINAL PRESSURE INCREASED [None]
  - NAUSEA [None]
